FAERS Safety Report 17407248 (Version 3)
Quarter: 2021Q4

REPORT INFORMATION
  Report Type: Report from Study
  Country: US (occurrence: US)
  Receive Date: 20200212
  Receipt Date: 20211101
  Transmission Date: 20220303
  Serious: No
  Sender: FDA-Public Use
  Company Number: US-SHIRE-US202005230

PATIENT
  Age: 48 Year
  Sex: Female
  Weight: 64 kg

DRUGS (28)
  1. TEDUGLUTIDE [Suspect]
     Active Substance: TEDUGLUTIDE
     Indication: Short-bowel syndrome
     Dosage: 0.395 INTERNATIONAL UNIT, QD
     Route: 058
     Dates: start: 20200202
  2. TEDUGLUTIDE [Suspect]
     Active Substance: TEDUGLUTIDE
     Indication: Short-bowel syndrome
     Dosage: 0.395 INTERNATIONAL UNIT, QD
     Route: 058
     Dates: start: 20200202
  3. TEDUGLUTIDE [Suspect]
     Active Substance: TEDUGLUTIDE
     Indication: Short-bowel syndrome
     Dosage: 0.395 INTERNATIONAL UNIT, QD
     Route: 058
     Dates: start: 20200202
  4. TEDUGLUTIDE [Suspect]
     Active Substance: TEDUGLUTIDE
     Indication: Short-bowel syndrome
     Dosage: 0.395 INTERNATIONAL UNIT, QD
     Route: 058
     Dates: start: 20200202
  5. TEDUGLUTIDE [Suspect]
     Active Substance: TEDUGLUTIDE
     Dosage: 0.33 MILLILITER, QD
     Route: 058
  6. TEDUGLUTIDE [Suspect]
     Active Substance: TEDUGLUTIDE
     Dosage: 0.33 MILLILITER, QD
     Route: 058
  7. TEDUGLUTIDE [Suspect]
     Active Substance: TEDUGLUTIDE
     Dosage: 0.33 MILLILITER, QD
     Route: 058
  8. TEDUGLUTIDE [Suspect]
     Active Substance: TEDUGLUTIDE
     Dosage: 0.33 MILLILITER, QD
     Route: 058
  9. PYRIDOXINE [Concomitant]
     Active Substance: PYRIDOXINE
  10. HYDROXYZINE PAMOATE [Concomitant]
     Active Substance: HYDROXYZINE PAMOATE
  11. CLONAZEPAM [Concomitant]
     Active Substance: CLONAZEPAM
  12. HUMIRA [Concomitant]
     Active Substance: ADALIMUMAB
  13. MAGNESIUM OXIDE [Concomitant]
     Active Substance: MAGNESIUM OXIDE
  14. SODIUM BICARBONATE [Concomitant]
     Active Substance: SODIUM BICARBONATE
  15. OMEPRAZOLE [Concomitant]
     Active Substance: OMEPRAZOLE
  16. CYCLOBENZAPRINE [Concomitant]
     Active Substance: CYCLOBENZAPRINE
  17. ZINC [Concomitant]
     Active Substance: ZINC
  18. VITAMIN B12 [Concomitant]
     Active Substance: CYANOCOBALAMIN
  19. LOPERAMIDE [Concomitant]
     Active Substance: LOPERAMIDE
  20. GABAPENTIN [Concomitant]
     Active Substance: GABAPENTIN
  21. VITAMIN D3 [Concomitant]
     Active Substance: CHOLECALCIFEROL
  22. BUSPIRONE [Concomitant]
     Active Substance: BUSPIRONE HYDROCHLORIDE
  23. CREON [Concomitant]
     Active Substance: PANCRELIPASE AMYLASE\PANCRELIPASE LIPASE\PANCRELIPASE PROTEASE
  24. DULOXETINE [Concomitant]
     Active Substance: DULOXETINE
  25. BUPROPION [Concomitant]
     Active Substance: BUPROPION
  26. COPPER [Concomitant]
     Active Substance: COPPER
  27. HYDROXYCHLOROQUINE [Concomitant]
     Active Substance: HYDROXYCHLOROQUINE
  28. PREDNISONE [Concomitant]
     Active Substance: PREDNISONE

REACTIONS (5)
  - Arthralgia [Unknown]
  - Weight decreased [Unknown]
  - Abdominal discomfort [Unknown]
  - Gastrointestinal infection [Unknown]
  - Decreased appetite [Unknown]

NARRATIVE: CASE EVENT DATE: 20200206
